FAERS Safety Report 11178998 (Version 1)
Quarter: 2015Q2

REPORT INFORMATION
  Report Type: Spontaneous
  Country: US (occurrence: None)
  Receive Date: 20150521
  Receipt Date: 20150521
  Transmission Date: 20150821
  Serious: Yes (Other)
  Sender: FDA-Public Use
  Company Number: GTI003203

PATIENT
  Age: 64 Year
  Sex: Female
  Weight: 85 kg

DRUGS (6)
  1. TYLENOL [Concomitant]
     Active Substance: ACETAMINOPHEN
  2. BABY ASPIRIN [Concomitant]
     Active Substance: ASPIRIN
  3. UNFRACTIONATED HEPARIN [Concomitant]
     Active Substance: HEPARIN SODIUM
  4. THIAMINE [Concomitant]
     Active Substance: THIAMINE
  5. METOPROLOL [Concomitant]
     Active Substance: METOPROLOL
  6. THROMBATE III [Suspect]
     Active Substance: ANTITHROMBIN III HUMAN
     Indication: DRUG EFFECT DECREASED
     Route: 042
     Dates: start: 20150307, end: 20150307

REACTIONS (2)
  - Coagulation time prolonged [None]
  - Haemorrhage [None]

NARRATIVE: CASE EVENT DATE: 20150307
